FAERS Safety Report 12155464 (Version 2)
Quarter: 2021Q2

REPORT INFORMATION
  Report Type: Spontaneous
  Country: AU (occurrence: AU)
  Receive Date: 20160307
  Receipt Date: 20210427
  Transmission Date: 20210716
  Serious: Yes (Hospitalization, Other)
  Sender: FDA-Public Use
  Company Number: AU-JNJFOC-20160303381

PATIENT
  Age: 63 Year
  Sex: Male
  Weight: 95.6 kg

DRUGS (9)
  1. XARELTO [Suspect]
     Active Substance: RIVAROXABAN
     Indication: PRODUCT USED FOR UNKNOWN INDICATION
     Dosage: 20 MG, QD
     Route: 048
     Dates: start: 20151103, end: 20151116
  2. CANDESARTAN CILEXETIL. [Concomitant]
     Active Substance: CANDESARTAN CILEXETIL
     Indication: MYOCARDIAL ISCHAEMIA
     Dosage: 8 MG, QD
     Route: 048
     Dates: start: 20151103
  3. ROSUVASTATIN. [Concomitant]
     Active Substance: ROSUVASTATIN
     Indication: BLOOD CHOLESTEROL INCREASED
     Dosage: 20 MG, QD
     Route: 048
     Dates: start: 20151103
  4. VASOCARDOL [Concomitant]
     Indication: MYOCARDIAL ISCHAEMIA
     Dosage: 360 MG, QD
     Route: 048
     Dates: start: 20151103
  5. NEXIUM I.V. [Concomitant]
     Active Substance: ESOMEPRAZOLE SODIUM
  6. XARELTO [Suspect]
     Active Substance: RIVAROXABAN
     Dosage: UNK
     Route: 048
     Dates: start: 20151129, end: 20151202
  7. SPIRONOLACTONE. [Concomitant]
     Active Substance: SPIRONOLACTONE
     Indication: MYOCARDIAL ISCHAEMIA
     Dosage: 25 MG, QD
     Route: 048
     Dates: start: 20151111
  8. OPSUMIT [Suspect]
     Active Substance: MACITENTAN
     Indication: PULMONARY HYPERTENSION
     Dosage: 10 MG, QD
     Route: 048
     Dates: start: 20151103
  9. SILDENAFIL CITRATE. [Concomitant]
     Active Substance: SILDENAFIL CITRATE
     Indication: PULMONARY ARTERIAL HYPERTENSION
     Dosage: 5 MG
     Route: 048
     Dates: start: 20151019

REACTIONS (4)
  - Melaena [Unknown]
  - Helicobacter gastritis [Unknown]
  - Large intestine polyp [Unknown]
  - Anaemia [Recovered/Resolved with Sequelae]

NARRATIVE: CASE EVENT DATE: 20151116
